FAERS Safety Report 5868637-0 (Version None)
Quarter: 2008Q3

REPORT INFORMATION
  Report Type: 
  Country: None (occurrence: None)
  Receive Date: 20080903
  Receipt Date: 20080826
  Transmission Date: 20090109
  Serious: Yes (Other)
  Sender: FDA-Public Use
  Company Number: US-BAYER-200832073NA

PATIENT
  Age: 69 Year
  Sex: Female
  Weight: 77 kg

DRUGS (7)
  1. CIPRO [Suspect]
     Indication: DRUG USE FOR UNKNOWN INDICATION
     Route: 048
  2. COUMADIN [Concomitant]
     Indication: ANTICOAGULANT THERAPY
     Dates: start: 19991001
  3. NEXIUM [Concomitant]
     Indication: GASTRIC DISORDER
     Dates: start: 19990101
  4. MULTI-VITAMIN [Concomitant]
     Dates: start: 20000101
  5. CALCIUM AND VITAMIN D [Concomitant]
     Dates: start: 20080101
  6. ASCORBIC ACID [Concomitant]
     Dates: start: 19990101
  7. PLAVIX [Concomitant]
     Indication: CORONARY ARTERIAL STENT INSERTION

REACTIONS (1)
  - DRUG HYPERSENSITIVITY [None]
